FAERS Safety Report 11445894 (Version 1)
Quarter: 2015Q3

REPORT INFORMATION
  Report Type: Spontaneous
  Country: US (occurrence: US)
  Receive Date: 20150831
  Receipt Date: 20150831
  Transmission Date: 20151125
  Serious: No
  Sender: FDA-Public Use
  Company Number: US-ELI_LILLY_AND_COMPANY-US200808002506

PATIENT
  Age: 57 Year
  Sex: Female

DRUGS (7)
  1. EFFEXOR [Concomitant]
     Active Substance: VENLAFAXINE HYDROCHLORIDE
  2. ACIPHEX [Concomitant]
     Active Substance: RABEPRAZOLE SODIUM
     Indication: GASTROOESOPHAGEAL REFLUX DISEASE
  3. SYMAX [Concomitant]
     Active Substance: HYOSCYAMINE SULFATE
     Indication: IRRITABLE BOWEL SYNDROME
  4. CYMBALTA [Suspect]
     Active Substance: DULOXETINE HYDROCHLORIDE
     Dosage: 20 MG, QOD
  5. ZOCOR [Concomitant]
     Active Substance: SIMVASTATIN
  6. CYMBALTA [Suspect]
     Active Substance: DULOXETINE HYDROCHLORIDE
     Indication: ANXIETY
     Dosage: 20 MG, DAILY (1/D)
     Dates: start: 200805
  7. HORMONES AND RELATED AGENTS [Concomitant]
     Active Substance: UNSPECIFIED INGREDIENT
     Indication: HORMONE REPLACEMENT THERAPY

REACTIONS (6)
  - Tremor [Unknown]
  - Feeling abnormal [Unknown]
  - Antinuclear antibody increased [Unknown]
  - Memory impairment [Unknown]
  - Hormone level abnormal [Unknown]
  - Weight decreased [Unknown]

NARRATIVE: CASE EVENT DATE: 200805
